FAERS Safety Report 25042185 (Version 1)
Quarter: 2025Q1

REPORT INFORMATION
  Report Type: Spontaneous
  Country: FR (occurrence: FR)
  Receive Date: 20250305
  Receipt Date: 20250305
  Transmission Date: 20250408
  Serious: Yes (Hospitalization)
  Sender: MYLAN
  Company Number: FR-ROCHE-3442118

PATIENT
  Age: 48 Year
  Sex: Male
  Weight: 71 kg

DRUGS (116)
  1. MYCOPHENOLATE MOFETIL [Suspect]
     Active Substance: MYCOPHENOLATE MOFETIL
     Indication: Systemic lupus erythematosus
     Dosage: 1 GRAM, BID, 2 TABLETS IN THE MORNING AND 2 TABLETS IN THE EVENING ((2 GRAMS/DAY)
     Dates: start: 20231005
  2. MYCOPHENOLATE MOFETIL [Suspect]
     Active Substance: MYCOPHENOLATE MOFETIL
     Dosage: 1 GRAM, BID, 2 TABLETS IN THE MORNING AND 2 TABLETS IN THE EVENING ((2 GRAMS/DAY)
     Route: 048
     Dates: start: 20231005
  3. MYCOPHENOLATE MOFETIL [Suspect]
     Active Substance: MYCOPHENOLATE MOFETIL
     Dosage: 1 GRAM, BID, 2 TABLETS IN THE MORNING AND 2 TABLETS IN THE EVENING ((2 GRAMS/DAY)
     Route: 048
     Dates: start: 20231005
  4. MYCOPHENOLATE MOFETIL [Suspect]
     Active Substance: MYCOPHENOLATE MOFETIL
     Dosage: 1 GRAM, BID, 2 TABLETS IN THE MORNING AND 2 TABLETS IN THE EVENING ((2 GRAMS/DAY)
     Dates: start: 20231005
  5. ACETAMINOPHEN [Suspect]
     Active Substance: ACETAMINOPHEN
     Indication: Premedication
     Dosage: 2 GRAM, QD
     Dates: start: 20231005, end: 20231005
  6. ACETAMINOPHEN [Suspect]
     Active Substance: ACETAMINOPHEN
     Dosage: 2 GRAM, QD
     Dates: start: 20231005, end: 20231005
  7. ACETAMINOPHEN [Suspect]
     Active Substance: ACETAMINOPHEN
     Dosage: 2 GRAM, QD
     Route: 048
     Dates: start: 20231005, end: 20231005
  8. ACETAMINOPHEN [Suspect]
     Active Substance: ACETAMINOPHEN
     Dosage: 2 GRAM, QD
     Route: 048
     Dates: start: 20231005, end: 20231005
  9. ACETAMINOPHEN [Suspect]
     Active Substance: ACETAMINOPHEN
  10. ACETAMINOPHEN [Suspect]
     Active Substance: ACETAMINOPHEN
  11. ACETAMINOPHEN [Suspect]
     Active Substance: ACETAMINOPHEN
     Route: 048
  12. ACETAMINOPHEN [Suspect]
     Active Substance: ACETAMINOPHEN
     Route: 048
  13. OBINUTUZUMAB [Suspect]
     Active Substance: OBINUTUZUMAB
     Indication: Systemic lupus erythematosus
     Dates: start: 20231005, end: 20231020
  14. OBINUTUZUMAB [Suspect]
     Active Substance: OBINUTUZUMAB
     Route: 042
     Dates: start: 20231005, end: 20231020
  15. OBINUTUZUMAB [Suspect]
     Active Substance: OBINUTUZUMAB
     Route: 042
     Dates: start: 20231005, end: 20231020
  16. OBINUTUZUMAB [Suspect]
     Active Substance: OBINUTUZUMAB
     Dates: start: 20231005, end: 20231020
  17. ISONIAZID [Suspect]
     Active Substance: ISONIAZID
     Indication: Product used for unknown indication
  18. ISONIAZID [Suspect]
     Active Substance: ISONIAZID
     Route: 065
  19. ISONIAZID [Suspect]
     Active Substance: ISONIAZID
     Route: 065
  20. ISONIAZID [Suspect]
     Active Substance: ISONIAZID
  21. METHYLPREDNISOLONE [Concomitant]
     Active Substance: METHYLPREDNISOLONE
     Dates: start: 20231005, end: 20231005
  22. METHYLPREDNISOLONE [Concomitant]
     Active Substance: METHYLPREDNISOLONE
     Route: 042
     Dates: start: 20231005, end: 20231005
  23. METHYLPREDNISOLONE [Concomitant]
     Active Substance: METHYLPREDNISOLONE
     Route: 042
     Dates: start: 20231005, end: 20231005
  24. METHYLPREDNISOLONE [Concomitant]
     Active Substance: METHYLPREDNISOLONE
     Dates: start: 20231005, end: 20231005
  25. POLARAMINE [Concomitant]
     Active Substance: DEXCHLORPHENIRAMINE MALEATE
     Dates: start: 20231005, end: 20231005
  26. POLARAMINE [Concomitant]
     Active Substance: DEXCHLORPHENIRAMINE MALEATE
     Route: 042
     Dates: start: 20231005, end: 20231005
  27. POLARAMINE [Concomitant]
     Active Substance: DEXCHLORPHENIRAMINE MALEATE
     Route: 042
     Dates: start: 20231005, end: 20231005
  28. POLARAMINE [Concomitant]
     Active Substance: DEXCHLORPHENIRAMINE MALEATE
     Dates: start: 20231005, end: 20231005
  29. PREDNISONE [Concomitant]
     Active Substance: PREDNISONE
     Dates: start: 20230929, end: 20231005
  30. PREDNISONE [Concomitant]
     Active Substance: PREDNISONE
     Route: 048
     Dates: start: 20230929, end: 20231005
  31. PREDNISONE [Concomitant]
     Active Substance: PREDNISONE
     Route: 048
     Dates: start: 20230929, end: 20231005
  32. PREDNISONE [Concomitant]
     Active Substance: PREDNISONE
     Dates: start: 20230929, end: 20231005
  33. PLAQUENIL [Concomitant]
     Active Substance: HYDROXYCHLOROQUINE SULFATE
  34. PLAQUENIL [Concomitant]
     Active Substance: HYDROXYCHLOROQUINE SULFATE
     Route: 048
  35. PLAQUENIL [Concomitant]
     Active Substance: HYDROXYCHLOROQUINE SULFATE
     Route: 048
  36. PLAQUENIL [Concomitant]
     Active Substance: HYDROXYCHLOROQUINE SULFATE
  37. COLCHICINE [Concomitant]
     Active Substance: COLCHICINE
     Indication: Pericarditis
  38. COLCHICINE [Concomitant]
     Active Substance: COLCHICINE
     Route: 048
  39. COLCHICINE [Concomitant]
     Active Substance: COLCHICINE
     Route: 048
  40. COLCHICINE [Concomitant]
     Active Substance: COLCHICINE
  41. IVERMECTIN [Concomitant]
     Active Substance: IVERMECTIN
  42. IVERMECTIN [Concomitant]
     Active Substance: IVERMECTIN
     Route: 048
  43. IVERMECTIN [Concomitant]
     Active Substance: IVERMECTIN
     Route: 048
  44. IVERMECTIN [Concomitant]
     Active Substance: IVERMECTIN
  45. FERINJECT [Concomitant]
     Active Substance: FERRIC CARBOXYMALTOSE
     Indication: Iron deficiency
  46. FERINJECT [Concomitant]
     Active Substance: FERRIC CARBOXYMALTOSE
     Route: 042
  47. FERINJECT [Concomitant]
     Active Substance: FERRIC CARBOXYMALTOSE
     Route: 042
  48. FERINJECT [Concomitant]
     Active Substance: FERRIC CARBOXYMALTOSE
  49. ZOMETA [Concomitant]
     Active Substance: ZOLEDRONIC ACID
     Indication: Osteoporosis prophylaxis
  50. ZOMETA [Concomitant]
     Active Substance: ZOLEDRONIC ACID
     Route: 042
  51. ZOMETA [Concomitant]
     Active Substance: ZOLEDRONIC ACID
     Route: 042
  52. ZOMETA [Concomitant]
     Active Substance: ZOLEDRONIC ACID
  53. LEVOTHYROXINE [Concomitant]
     Active Substance: LEVOTHYROXINE
     Indication: Hypothyroidism
  54. LEVOTHYROXINE [Concomitant]
     Active Substance: LEVOTHYROXINE
     Route: 048
  55. LEVOTHYROXINE [Concomitant]
     Active Substance: LEVOTHYROXINE
     Route: 048
  56. LEVOTHYROXINE [Concomitant]
     Active Substance: LEVOTHYROXINE
  57. ENTECAVIR [Concomitant]
     Active Substance: ENTECAVIR
  58. ENTECAVIR [Concomitant]
     Active Substance: ENTECAVIR
     Route: 048
  59. ENTECAVIR [Concomitant]
     Active Substance: ENTECAVIR
     Route: 048
  60. ENTECAVIR [Concomitant]
     Active Substance: ENTECAVIR
  61. RAMIPRIL [Concomitant]
     Active Substance: RAMIPRIL
     Indication: Lupus nephritis
  62. RAMIPRIL [Concomitant]
     Active Substance: RAMIPRIL
     Route: 048
  63. RAMIPRIL [Concomitant]
     Active Substance: RAMIPRIL
     Route: 048
  64. RAMIPRIL [Concomitant]
     Active Substance: RAMIPRIL
  65. Calcidose [Concomitant]
  66. Calcidose [Concomitant]
     Route: 048
  67. Calcidose [Concomitant]
     Route: 048
  68. Calcidose [Concomitant]
  69. CHOLECALCIFEROL [Concomitant]
     Active Substance: CHOLECALCIFEROL
  70. CHOLECALCIFEROL [Concomitant]
     Active Substance: CHOLECALCIFEROL
     Route: 048
  71. CHOLECALCIFEROL [Concomitant]
     Active Substance: CHOLECALCIFEROL
     Route: 048
  72. CHOLECALCIFEROL [Concomitant]
     Active Substance: CHOLECALCIFEROL
  73. ELIQUIS [Concomitant]
     Active Substance: APIXABAN
  74. ELIQUIS [Concomitant]
     Active Substance: APIXABAN
     Route: 065
  75. ELIQUIS [Concomitant]
     Active Substance: APIXABAN
     Route: 065
  76. ELIQUIS [Concomitant]
     Active Substance: APIXABAN
  77. RIMIFON [Concomitant]
     Active Substance: ISONIAZID
  78. RIMIFON [Concomitant]
     Active Substance: ISONIAZID
     Route: 065
  79. RIMIFON [Concomitant]
     Active Substance: ISONIAZID
     Route: 065
  80. RIMIFON [Concomitant]
     Active Substance: ISONIAZID
  81. LANSOPRAZOLE [Concomitant]
     Active Substance: LANSOPRAZOLE
  82. LANSOPRAZOLE [Concomitant]
     Active Substance: LANSOPRAZOLE
     Route: 065
  83. LANSOPRAZOLE [Concomitant]
     Active Substance: LANSOPRAZOLE
     Route: 065
  84. LANSOPRAZOLE [Concomitant]
     Active Substance: LANSOPRAZOLE
  85. TRAMADOL HYDROCHLORIDE [Concomitant]
     Active Substance: TRAMADOL HYDROCHLORIDE
     Indication: Headache
  86. TRAMADOL HYDROCHLORIDE [Concomitant]
     Active Substance: TRAMADOL HYDROCHLORIDE
     Route: 065
  87. TRAMADOL HYDROCHLORIDE [Concomitant]
     Active Substance: TRAMADOL HYDROCHLORIDE
     Route: 065
  88. TRAMADOL HYDROCHLORIDE [Concomitant]
     Active Substance: TRAMADOL HYDROCHLORIDE
  89. METOCLOPRAMIDE [Concomitant]
     Active Substance: METOCLOPRAMIDE
     Indication: Nausea
  90. METOCLOPRAMIDE [Concomitant]
     Active Substance: METOCLOPRAMIDE
     Route: 042
  91. METOCLOPRAMIDE [Concomitant]
     Active Substance: METOCLOPRAMIDE
     Route: 042
  92. METOCLOPRAMIDE [Concomitant]
     Active Substance: METOCLOPRAMIDE
  93. MORPHINE [Concomitant]
     Active Substance: MORPHINE
     Indication: Headache
  94. MORPHINE [Concomitant]
     Active Substance: MORPHINE
     Indication: Nausea
     Route: 042
  95. MORPHINE [Concomitant]
     Active Substance: MORPHINE
     Route: 042
  96. MORPHINE [Concomitant]
     Active Substance: MORPHINE
  97. HYDROXYZINE [Concomitant]
     Active Substance: HYDROXYZINE HYDROCHLORIDE
     Indication: Headache
  98. HYDROXYZINE [Concomitant]
     Active Substance: HYDROXYZINE HYDROCHLORIDE
     Indication: Nausea
     Route: 065
  99. HYDROXYZINE [Concomitant]
     Active Substance: HYDROXYZINE HYDROCHLORIDE
     Route: 065
  100. HYDROXYZINE [Concomitant]
     Active Substance: HYDROXYZINE HYDROCHLORIDE
  101. NEFOPAM [Concomitant]
     Active Substance: NEFOPAM
     Indication: Headache
  102. NEFOPAM [Concomitant]
     Active Substance: NEFOPAM
     Indication: Nausea
     Route: 042
  103. NEFOPAM [Concomitant]
     Active Substance: NEFOPAM
     Route: 042
  104. NEFOPAM [Concomitant]
     Active Substance: NEFOPAM
  105. PREDNISONE [Concomitant]
     Active Substance: PREDNISONE
     Dosage: 10 MILLIGRAM, QD
  106. PREDNISONE [Concomitant]
     Active Substance: PREDNISONE
     Dosage: 10 MILLIGRAM, QD
     Route: 065
  107. PREDNISONE [Concomitant]
     Active Substance: PREDNISONE
     Dosage: 10 MILLIGRAM, QD
     Route: 065
  108. PREDNISONE [Concomitant]
     Active Substance: PREDNISONE
     Dosage: 10 MILLIGRAM, QD
  109. LEVOTHYROXINE [Concomitant]
     Active Substance: LEVOTHYROXINE
  110. LEVOTHYROXINE [Concomitant]
     Active Substance: LEVOTHYROXINE
     Route: 065
  111. LEVOTHYROXINE [Concomitant]
     Active Substance: LEVOTHYROXINE
     Route: 065
  112. LEVOTHYROXINE [Concomitant]
     Active Substance: LEVOTHYROXINE
  113. PNEUMOVAX NOS [Concomitant]
     Active Substance: PNEUMOCOCCAL VACCINE POLYVALENT
  114. PNEUMOVAX NOS [Concomitant]
     Active Substance: PNEUMOCOCCAL VACCINE POLYVALENT
     Route: 065
  115. PNEUMOVAX NOS [Concomitant]
     Active Substance: PNEUMOCOCCAL VACCINE POLYVALENT
     Route: 065
  116. PNEUMOVAX NOS [Concomitant]
     Active Substance: PNEUMOCOCCAL VACCINE POLYVALENT

REACTIONS (3)
  - Hepatitis toxic [Recovered/Resolved]
  - Renal failure [Recovered/Resolved]
  - Overdose [Unknown]

NARRATIVE: CASE EVENT DATE: 20231009
